FAERS Safety Report 6108671-9 (Version None)
Quarter: 2009Q1

REPORT INFORMATION
  Report Type: 
  Country: None (occurrence: None)
  Receive Date: 20090305
  Receipt Date: 20090209
  Transmission Date: 20090719
  Serious: Yes (Other)
  Sender: FDA-Public Use
  Company Number: 2009S1002275

PATIENT
  Age: 14 Year
  Sex: Female

DRUGS (7)
  1. SALBUTAMOL (SALBUTAMOL) [Suspect]
     Indication: HYPERKALAEMIA
     Dosage: INHALATION
     Route: 055
  2. SPIRONOLACTONE [Suspect]
  3. IBUPROFEN [Suspect]
  4. IMMUNOSUPPRESSANTS (PREV.) [Concomitant]
  5. FUROSEMIDE (CON.) [Concomitant]
  6. ANGIOTENSIN II ANTAGONISTS [Concomitant]
  7. ANTAGONISTS, PLAIN (CON.) [Concomitant]

REACTIONS (2)
  - ANION GAP INCREASED [None]
  - LACTIC ACIDOSIS [None]
